FAERS Safety Report 7279276-1 (Version None)
Quarter: 2011Q1

REPORT INFORMATION
  Report Type: 
  Country: None (occurrence: None)
  Receive Date: 20110207
  Receipt Date: 20110131
  Transmission Date: 20110831
  Serious: Yes (Other)
  Sender: FDA-Public Use
  Company Number: CN-PFIZER INC-2011021925

PATIENT
  Age: 53 Year
  Sex: Male

DRUGS (7)
  1. CLOPIDOGREL [Interacting]
     Indication: ACUTE CORONARY SYNDROME
     Dosage: UNK
  2. CLOPIDOGREL [Interacting]
     Indication: STENT PLACEMENT
  3. HEPARIN-FRACTION [Concomitant]
  4. METOPROLOL [Concomitant]
  5. ATORVASTATIN CALCIUM [Suspect]
     Dosage: 10 MG DAILY
  6. ASPIRIN [Concomitant]
  7. ISOSORBIDE DINITRATE [Concomitant]

REACTIONS (2)
  - DRUG INTERACTION [None]
  - ALANINE AMINOTRANSFERASE INCREASED [None]
